FAERS Safety Report 16773432 (Version 1)
Quarter: 2019Q3

REPORT INFORMATION
  Report Type: Spontaneous
  Country: US (occurrence: US)
  Receive Date: 20190904
  Receipt Date: 20190904
  Transmission Date: 20191005
  Serious: No
  Sender: FDA-Public Use
  Company Number: US-TEVA-2019-US-1102459

PATIENT
  Age: 70 Year
  Sex: Female
  Weight: 68 kg

DRUGS (7)
  1. PREDNISONE TABLET [Suspect]
     Active Substance: PREDNISONE
     Indication: POLYMYALGIA RHEUMATICA
     Route: 065
     Dates: start: 20180209
  2. PREDNISONE TABLET [Suspect]
     Active Substance: PREDNISONE
     Route: 065
  3. PREDNISONE TABLET [Suspect]
     Active Substance: PREDNISONE
     Route: 065
  4. PREDNISONE TABLET [Suspect]
     Active Substance: PREDNISONE
     Route: 065
  5. PREDNISONE TABLET [Suspect]
     Active Substance: PREDNISONE
     Dosage: TAKE A 5 MG TABLET AND FOUR 1 MG TABLETS
     Route: 065
     Dates: end: 20180606
  6. PREDNISONE TABLET [Suspect]
     Active Substance: PREDNISONE
     Route: 065
  7. PREDNISONE TABLET [Suspect]
     Active Substance: PREDNISONE
     Route: 065

REACTIONS (9)
  - Dysstasia [Unknown]
  - Weight increased [Recovering/Resolving]
  - Walking aid user [Unknown]
  - Peripheral swelling [Not Recovered/Not Resolved]
  - Insomnia [Unknown]
  - Hypoaesthesia [Unknown]
  - Fluid retention [Recovering/Resolving]
  - Paraesthesia [Unknown]
  - Joint swelling [Not Recovered/Not Resolved]

NARRATIVE: CASE EVENT DATE: 20190828
